FAERS Safety Report 9538793 (Version 1)
Quarter: 2013Q3

REPORT INFORMATION
  Report Type: Report from Study
  Country: AR (occurrence: AR)
  Receive Date: 20130920
  Receipt Date: 20130920
  Transmission Date: 20140515
  Serious: Yes (Death)
  Sender: FDA-Public Use
  Company Number: PHHY2013AR104517

PATIENT
  Sex: Female

DRUGS (1)
  1. DIOVAN D [Suspect]
     Dosage: 1 DF (VALS 160MG, HCTZ 12.5MG)
     Route: 048

REACTIONS (2)
  - Renal failure [Fatal]
  - Respiratory arrest [Fatal]
